FAERS Safety Report 6587874-3 (Version None)
Quarter: 2010Q1

REPORT INFORMATION
  Report Type: 
  Country: None (occurrence: None)
  Receive Date: 20100217
  Receipt Date: 20100217
  Transmission Date: 20100710
  Serious: No
  Sender: FDA-Public Use
  Company Number: None

PATIENT
  Sex: Female

DRUGS (1)
  1. BUPROPION HCL [Suspect]
     Indication: MOVEMENT DISORDER
     Dosage: 3 TABS QAM PO
     Route: 048
     Dates: start: 20090101

REACTIONS (3)
  - AGITATION [None]
  - DEPRESSION [None]
  - PRODUCT SUBSTITUTION ISSUE [None]
